FAERS Safety Report 16309051 (Version 3)
Quarter: 2019Q3

REPORT INFORMATION
  Report Type: Spontaneous
  Country: US (occurrence: US)
  Receive Date: 20190514
  Receipt Date: 20190807
  Transmission Date: 20191004
  Serious: No
  Sender: FDA-Public Use
  Company Number: US-PFIZER INC-2019204069

PATIENT
  Age: 81 Year
  Sex: Female

DRUGS (3)
  1. XGEVA [Suspect]
     Active Substance: DENOSUMAB
     Indication: BONE CANCER
     Dosage: UNK, MONTHLY
     Dates: start: 201904
  2. LETROZOLE. [Suspect]
     Active Substance: LETROZOLE
     Indication: BONE CANCER
     Dosage: 2.5 MG, DAILY (2.5 MG 1 DAILY 30-31 DAYS)
     Dates: start: 201903
  3. IBRANCE [Suspect]
     Active Substance: PALBOCICLIB
     Indication: BREAST CANCER FEMALE
     Dosage: 100 MG, 1X/DAY (100 MG 21 DAYS ONCE A DAY)
     Dates: start: 201903

REACTIONS (7)
  - Bronchitis [Not Recovered/Not Resolved]
  - Peripheral swelling [Unknown]
  - Laryngitis [Not Recovered/Not Resolved]
  - Lethargy [Unknown]
  - Joint swelling [Unknown]
  - Fatigue [Unknown]
  - Dysphonia [Recovered/Resolved]

NARRATIVE: CASE EVENT DATE: 20190621
